FAERS Safety Report 18081330 (Version 1)
Quarter: 2020Q3

REPORT INFORMATION
  Report Type: Spontaneous
  Country: DE (occurrence: DE)
  Receive Date: 20200728
  Receipt Date: 20200728
  Transmission Date: 20201103
  Serious: Yes (Other)
  Sender: FDA-Public Use
  Company Number: DE-MYLANLABS-2020M1067173

PATIENT
  Age: 1 Day
  Sex: Female
  Weight: 2.4 kg

DRUGS (6)
  1. UTROGEST [Concomitant]
     Active Substance: PROGESTERONE
     Indication: ABORTION THREATENED
     Dosage: 200 [MG/D ]/ 2X100MG DAILY 2 SEPARATED DOSES
     Route: 064
  2. PARACETAMOL [Concomitant]
     Active Substance: ACETAMINOPHEN
     Indication: PAIN
     Dosage: 1000 [MG/D ]/ TWICE
     Route: 064
  3. CYTOTEC [Concomitant]
     Active Substance: MISOPROSTOL
     Indication: LABOUR INDUCTION
     Dosage: UNK
     Route: 064
     Dates: start: 20191208, end: 20191210
  4. OXYTOCIN. [Concomitant]
     Active Substance: OXYTOCIN
     Indication: OBSTETRICAL PROCEDURE
     Dosage: UNK
     Route: 064
     Dates: start: 20191210, end: 20191210
  5. ESCITALOPRAM [Suspect]
     Active Substance: ESCITALOPRAM OXALATE
     Indication: ANXIETY DISORDER
     Dosage: 10 [MG/D ]
     Route: 064
     Dates: start: 20190227, end: 20191210
  6. CLEXANE [Concomitant]
     Active Substance: ENOXAPARIN SODIUM
     Indication: THROMBOSIS PROPHYLAXIS
     Dosage: 20 [MG/D ]
     Route: 064
     Dates: start: 20190518, end: 20190521

REACTIONS (3)
  - Small for dates baby [Recovered/Resolved]
  - Temperature regulation disorder [Recovered/Resolved]
  - Foetal exposure during pregnancy [Recovered/Resolved]

NARRATIVE: CASE EVENT DATE: 20191210
